FAERS Safety Report 11645290 (Version 1)
Quarter: 2015Q4

REPORT INFORMATION
  Report Type: Spontaneous
  Country: US (occurrence: US)
  Receive Date: 20151020
  Receipt Date: 20151020
  Transmission Date: 20160304
  Serious: Yes (Hospitalization)
  Sender: FDA-Public Use
  Company Number: US-BAYER-2015-441389

PATIENT
  Sex: Female

DRUGS (1)
  1. BAYER EXTRA STRENGTH ASPIRIN [Suspect]
     Active Substance: ASPIRIN

REACTIONS (3)
  - Gastric disorder [None]
  - Hospitalisation [None]
  - Ulcer [None]
